FAERS Safety Report 21572887 (Version 3)
Quarter: 2024Q1

REPORT INFORMATION
  Report Type: Spontaneous
  Country: US (occurrence: US)
  Receive Date: 20221109
  Receipt Date: 20240314
  Transmission Date: 20240410
  Serious: No
  Sender: FDA-Public Use
  Company Number: US-PFIZER INC-202101505886

PATIENT
  Age: 10 Month
  Sex: Female

DRUGS (3)
  1. EUCRISA [Suspect]
     Active Substance: CRISABOROLE
     Indication: Dermatitis
     Dosage: 1 DF, 2X/DAY
     Route: 061
  2. EUCRISA [Suspect]
     Active Substance: CRISABOROLE
     Indication: Urticaria
  3. EUCRISA [Suspect]
     Active Substance: CRISABOROLE
     Indication: Dermatitis atopic

REACTIONS (2)
  - Therapeutic product effect incomplete [Unknown]
  - Off label use [Unknown]
